FAERS Safety Report 8517721-1 (Version None)
Quarter: 2012Q3

REPORT INFORMATION
  Report Type: 
  Country: None (occurrence: None)
  Receive Date: 20120718
  Receipt Date: 20110928
  Transmission Date: 20120928
  Serious: Yes (Life-Threatening, Hospitalization, Other)
  Sender: FDA-Public Use
  Company Number: JP-CELGENEUS-087-50794-11092169

PATIENT
  Sex: Female
  Weight: 68 kg

DRUGS (15)
  1. CANDESARTAN CILEXETIL [Concomitant]
     Dosage: 6 MILLIGRAM
     Route: 048
  2. VIDAZA [Suspect]
     Dosage: 75 MILLIGRAM/SQ. METER
     Route: 041
     Dates: start: 20110718, end: 20110724
  3. MEROPENEM [Concomitant]
     Dosage: 1 GRAM
     Route: 041
     Dates: start: 20110803, end: 20110816
  4. AMIKACIN [Concomitant]
     Dosage: 200 MILLIGRAM
     Route: 041
     Dates: start: 20110724, end: 20110802
  5. VIDAZA [Suspect]
     Indication: MYELODYSPLASTIC SYNDROME
     Dosage: 75 MILLIGRAM/SQ. METER
     Route: 041
     Dates: start: 20110621, end: 20110627
  6. TAIPERACILIN [Concomitant]
     Dosage: 4 GRAM
     Route: 041
     Dates: start: 20110715, end: 20110720
  7. APRINOR [Concomitant]
     Dosage: 100 MILLIGRAM
     Route: 048
  8. NEUROTROPIN [Concomitant]
     Dosage: 16 IU (INTERNATIONAL UNIT)
     Route: 048
  9. LASIX [Concomitant]
     Dosage: 20 MILLIGRAM
     Route: 048
  10. ADONA [Concomitant]
     Dosage: 90 MILLIGRAM
     Route: 048
     Dates: start: 20110530
  11. MEROPENEM [Concomitant]
     Dosage: 1 GRAM
     Route: 041
     Dates: start: 20110626, end: 20110714
  12. CELEBREX [Concomitant]
     Dosage: 200 MILLIGRAM
     Route: 048
  13. LEVOTHYROXINE SODIUM [Concomitant]
     Dosage: 75 MICROGRAM
     Route: 048
  14. TIEPENEM [Concomitant]
     Dosage: 1 GRAM
     Route: 041
     Dates: start: 20110721, end: 20110802
  15. NIZATIDINE [Concomitant]
     Dosage: 150 MILLIGRAM
     Route: 048

REACTIONS (11)
  - C-REACTIVE PROTEIN INCREASED [None]
  - BLOOD UREA INCREASED [None]
  - PYREXIA [None]
  - PLATELET COUNT DECREASED [None]
  - HAEMOGLOBIN DECREASED [None]
  - PNEUMONIA [None]
  - NEUTROPHIL COUNT DECREASED [None]
  - ALANINE AMINOTRANSFERASE INCREASED [None]
  - ASPARTATE AMINOTRANSFERASE INCREASED [None]
  - BLOOD LACTATE DEHYDROGENASE INCREASED [None]
  - BLOOD CREATININE INCREASED [None]
